FAERS Safety Report 8456158-0 (Version None)
Quarter: 2012Q2

REPORT INFORMATION
  Report Type: 
  Country: None (occurrence: None)
  Receive Date: 20120621
  Receipt Date: 20120620
  Transmission Date: 20120825
  Serious: Yes (Hospitalization, Other)
  Sender: FDA-Public Use
  Company Number: PHHY2012BR052805

PATIENT
  Age: 52 Year
  Sex: Female

DRUGS (4)
  1. METOPROLOL SUCCINATE [Concomitant]
  2. DIOVAN [Concomitant]
     Indication: HYPERTENSION
     Dosage: 1 DF, DAILY
     Route: 048
  3. RASILEZ [Suspect]
     Indication: HYPERTENSION
     Dosage: 1 DF, DAILY
  4. ATORVASTATIN CALCIUM [Concomitant]

REACTIONS (3)
  - INFARCTION [None]
  - MUSCLE NECROSIS [None]
  - CARDIOMEGALY [None]
